FAERS Safety Report 20513682 (Version 2)
Quarter: 2023Q1

REPORT INFORMATION
  Report Type: Spontaneous
  Country: US (occurrence: US)
  Receive Date: 20220224
  Receipt Date: 20230307
  Transmission Date: 20230418
  Serious: No
  Sender: FDA-Public Use
  Company Number: US-AMNEAL PHARMACEUTICALS-2021-AMRX-01560

PATIENT
  Age: 63 Year
  Sex: Female

DRUGS (3)
  1. RYTARY [Suspect]
     Active Substance: CARBIDOPA\LEVODOPA
     Indication: Product used for unknown indication
     Dosage: 23.75/95 MG, 1 CAPSULES, 3X/DAY
     Route: 048
  2. RYTARY [Suspect]
     Active Substance: CARBIDOPA\LEVODOPA
     Dosage: 36.25/145 MG,1 CAPSULES, 3X/DAY
     Route: 048
     Dates: start: 20210208
  3. RYTARY [Suspect]
     Active Substance: CARBIDOPA\LEVODOPA
     Dosage: 61.25-245 MG, 1 CAPSULES, 3X/DAY
     Route: 048

REACTIONS (7)
  - Pain [Unknown]
  - Tremor [Unknown]
  - Memory impairment [Unknown]
  - Hypotension [Unknown]
  - Headache [Unknown]
  - Incorrect dose administered [Unknown]
  - Product packaging quantity issue [Unknown]

NARRATIVE: CASE EVENT DATE: 20210914
